FAERS Safety Report 14448925 (Version 1)
Quarter: 2018Q1

REPORT INFORMATION
  Report Type: Spontaneous
  Country: US (occurrence: US)
  Receive Date: 20180126
  Receipt Date: 20180126
  Transmission Date: 20180509
  Serious: Yes (Other)
  Sender: FDA-Public Use
  Company Number: US-OTSUKA-14942379

PATIENT
  Age: 55 Year
  Sex: Female

DRUGS (6)
  1. ABILIFY [Suspect]
     Active Substance: ARIPIPRAZOLE
     Indication: BIPOLAR DISORDER
     Dosage: HAD BEEN UPTO 7.5 MG DAILY FOR ABOUT A MONTH.
     Route: 048
     Dates: start: 20080625, end: 20090908
  2. ABILIFY [Suspect]
     Active Substance: ARIPIPRAZOLE
     Indication: MOOD SWINGS
  3. L-THYROXINE [Concomitant]
     Active Substance: LEVOTHYROXINE
     Dosage: THERAPY ONGOING
  4. BUPROPION SR [Concomitant]
     Active Substance: BUPROPION HYDROCHLORIDE
     Dosage: 08JUN09-21AUG09,22OCT09-PRESENT 100 MG HOUR BEFORE SLEEP
     Dates: start: 20090608
  5. LICO3 [Concomitant]
     Dosage: 1 DF = 600MG/900MG
     Dates: start: 20090902
  6. GABAPENTIN. [Concomitant]
     Active Substance: GABAPENTIN
     Dosage: 1 DOSAGE FORM = 300 MG DURING AM + 900 MG HOUR BEFORE SLEEP.

REACTIONS (1)
  - Tardive dyskinesia [Not Recovered/Not Resolved]

NARRATIVE: CASE EVENT DATE: 200905
